FAERS Safety Report 5324847-2 (Version None)
Quarter: 2007Q2

REPORT INFORMATION
  Report Type: 
  Country: None (occurrence: None)
  Receive Date: 20070515
  Receipt Date: 20070507
  Transmission Date: 20071010
  Serious: Yes (Hospitalization)
  Sender: FDA-Public Use
  Company Number: US-JNJFOC-20070501546

PATIENT
  Sex: Male
  Weight: 122.47 kg

DRUGS (10)
  1. RISPERDAL CONSTA [Suspect]
     Indication: SCHIZOPHRENIA
     Route: 030
  2. RISPERDAL [Concomitant]
  3. RISPERDAL [Concomitant]
     Indication: SCHIZOPHRENIA
  4. DEPAKOTE ER [Concomitant]
  5. DEPAKOTE ER [Concomitant]
  6. DEPAKOTE ER [Concomitant]
     Indication: SCHIZOPHRENIA
  7. COGENTIN [Concomitant]
  8. COGENTIN [Concomitant]
     Indication: EXTRAPYRAMIDAL DISORDER
  9. PROLIXIN [Concomitant]
     Indication: SCHIZOPHRENIA
  10. CELEXA [Concomitant]
     Indication: OBSESSIVE-COMPULSIVE DISORDER

REACTIONS (2)
  - HYPONATRAEMIA [None]
  - RESPIRATORY FAILURE [None]
